FAERS Safety Report 10377365 (Version 2)
Quarter: 2014Q4

REPORT INFORMATION
  Report Type: Spontaneous
  Country: JP (occurrence: JP)
  Receive Date: 20140812
  Receipt Date: 20141113
  Transmission Date: 20150528
  Serious: Yes (Death)
  Sender: FDA-Public Use
  Company Number: PHHY2012JP134078

PATIENT
  Age: 77 Year
  Sex: Male

DRUGS (3)
  1. EXJADE [Suspect]
     Active Substance: DEFERASIROX
     Indication: HAEMOCHROMATOSIS
  2. VIDAZA [Suspect]
     Active Substance: AZACITIDINE
     Indication: PRODUCT USED FOR UNKNOWN INDICATION
     Dosage: 100 MG, DAILY
     Route: 058
     Dates: start: 20110518, end: 20110719
  3. EXJADE [Suspect]
     Active Substance: DEFERASIROX
     Indication: MYELODYSPLASTIC SYNDROME
     Dosage: 500 MG, DAILY
     Route: 048
     Dates: start: 20110329, end: 20110926

REACTIONS (5)
  - Febrile neutropenia [Fatal]
  - Infection [Fatal]
  - Staphylococcal sepsis [Fatal]
  - Disease progression [Fatal]
  - Pancytopenia [Fatal]

NARRATIVE: CASE EVENT DATE: 20110830
